FAERS Safety Report 24845423 (Version 1)
Quarter: 2025Q1

REPORT INFORMATION
  Report Type: Spontaneous
  Country: US (occurrence: US)
  Receive Date: 20250115
  Receipt Date: 20250115
  Transmission Date: 20250409
  Serious: Yes (Other)
  Sender: BRISTOL-MYERS SQUIBB COMPANY
  Company Number: US-BRISTOL-MYERS SQUIBB COMPANY-2025-002705

PATIENT
  Age: 74 Year
  Sex: Female

DRUGS (12)
  1. LENALIDOMIDE [Suspect]
     Active Substance: LENALIDOMIDE
     Indication: Plasma cell myeloma
     Dosage: TAKE 1 CAPSULE BY MOUTH DAILY FOR 14 DAYS, THEN 14 DAYS OFF
     Route: 048
  2. TYLENOL EXTRA STRENGTH [Concomitant]
     Active Substance: ACETAMINOPHEN
  3. MAGNESIUM [Concomitant]
     Active Substance: MAGNESIUM
  4. .ALPHA.-TOCOPHEROL ACETATE, DL- [Concomitant]
     Active Substance: .ALPHA.-TOCOPHEROL ACETATE, DL-
  5. CALCIUM CARBONATE [Concomitant]
     Active Substance: CALCIUM CARBONATE
  6. ASPIRIN [Concomitant]
     Active Substance: ASPIRIN
  7. EZETIMIBE [Concomitant]
     Active Substance: EZETIMIBE
  8. VITAMIN C [Concomitant]
     Active Substance: ASCORBIC ACID
  9. ZYRTEC [Concomitant]
     Active Substance: CETIRIZINE HYDROCHLORIDE
  10. THYROID [Concomitant]
     Active Substance: LEVOTHYROXINE\LIOTHYRONINE
  11. VITAMIN D3 [Concomitant]
     Active Substance: CHOLECALCIFEROL
  12. MINERALS\VITAMINS [Concomitant]
     Active Substance: MINERALS\VITAMINS
     Dosage: QC WOMENS DAILY MULTIVITA

REACTIONS (3)
  - Anaemia [Unknown]
  - Leukopenia [Unknown]
  - Off label use [Unknown]
